FAERS Safety Report 17550392 (Version 1)
Quarter: 2020Q1

REPORT INFORMATION
  Report Type: Report from Study
  Country: NL (occurrence: NL)
  Receive Date: 20200317
  Receipt Date: 20200317
  Transmission Date: 20200409
  Serious: Yes (Other)
  Sender: FDA-Public Use
  Company Number: NL-MYLANLABS-2020M1027680

PATIENT
  Age: 59 Year
  Sex: Female

DRUGS (2)
  1. PREDNISON [Concomitant]
     Active Substance: PREDNISONE
     Dosage: MG, 1X/D
     Route: 048
     Dates: start: 20140101, end: 20140301
  2. AZATHIOPRINE. [Suspect]
     Active Substance: AZATHIOPRINE
     Indication: CROHN^S DISEASE
     Dosage: 50MG, 3X/D
     Route: 048
     Dates: start: 20140101, end: 20140201

REACTIONS (1)
  - Pancreatitis [Recovered/Resolved]

NARRATIVE: CASE EVENT DATE: 20140201
